FAERS Safety Report 10417702 (Version 1)
Quarter: 2014Q2

REPORT INFORMATION
  Report Type: Spontaneous
  Country: US (occurrence: None)
  Receive Date: 20140609
  Receipt Date: 20140609
  Transmission Date: 20141212
  Serious: No
  Sender: FDA-Public Use
  Company Number: 2014TUS001568

PATIENT
  Sex: Male

DRUGS (2)
  1. BRINTELLIX [Suspect]
  2. MULTIPLE MEDICATIONS [Concomitant]

REACTIONS (3)
  - Disturbance in attention [None]
  - Confusional state [None]
  - Asthenia [None]
